FAERS Safety Report 7632519-4 (Version None)
Quarter: 2011Q3

REPORT INFORMATION
  Report Type: 
  Country: None (occurrence: None)
  Receive Date: 20110725
  Receipt Date: 20100928
  Transmission Date: 20111222
  Serious: No
  Sender: FDA-Public Use
  Company Number: US-BRISTOL-MYERS SQUIBB COMPANY-15308026

PATIENT
  Age: 87 Year
  Sex: Female

DRUGS (16)
  1. COUMADIN [Suspect]
     Dates: start: 20100925
  2. FLUOROMETHOLONE [Concomitant]
  3. GABAPENTIN [Concomitant]
  4. FUROSEMIDE [Concomitant]
  5. ASPIRIN [Concomitant]
  6. MELOXICAM [Concomitant]
  7. GLIMEPIRIDE [Concomitant]
  8. BENICAR [Concomitant]
  9. CLONIDINE [Concomitant]
  10. FORTICAL [Concomitant]
  11. CYMBALTA [Concomitant]
  12. TRAVATAN [Concomitant]
  13. VERAPAMIL [Concomitant]
  14. KETOROLAC TROMETHAMINE [Concomitant]
  15. BETIMOL [Concomitant]
  16. AZOPT [Concomitant]

REACTIONS (1)
  - CONSTIPATION [None]
